FAERS Safety Report 25232401 (Version 1)
Quarter: 2025Q2

REPORT INFORMATION
  Report Type: Spontaneous
  Country: CA (occurrence: CA)
  Receive Date: 20250423
  Receipt Date: 20250423
  Transmission Date: 20250716
  Serious: Yes (Other)
  Sender: TEVA
  Company Number: CA-TEVA-VS-3322732

PATIENT
  Age: 47 Year
  Sex: Female

DRUGS (7)
  1. MODAFINIL [Suspect]
     Active Substance: MODAFINIL
     Indication: Product used for unknown indication
     Route: 048
  2. DEXTROAMPHETAMINE [Suspect]
     Active Substance: DEXTROAMPHETAMINE
     Indication: Fatigue
     Route: 065
  3. RUXIENCE [Suspect]
     Active Substance: RITUXIMAB-PVVR
     Indication: Multiple sclerosis
     Dosage: 1000 MG IV Q 2 WEEKSX2 DOSES THEN 1000 MG IV Q 6 MONTHS,
     Route: 042
     Dates: start: 20240227
  4. RUXIENCE [Suspect]
     Active Substance: RITUXIMAB-PVVR
     Indication: Multiple sclerosis
     Dosage: 1000 MG IV Q 2 WEEKSX2 DOSES THEN 1000 MG IV Q 6 MONTHS,
     Route: 042
     Dates: start: 20240313
  5. RUXIENCE [Suspect]
     Active Substance: RITUXIMAB-PVVR
     Indication: Multiple sclerosis
     Route: 042
     Dates: start: 20240911
  6. FAMOTIDINE [Suspect]
     Active Substance: FAMOTIDINE
     Indication: Fatigue
     Route: 065
  7. BACLOFEN [Suspect]
     Active Substance: BACLOFEN
     Indication: Product used for unknown indication
     Route: 048

REACTIONS (6)
  - Multiple sclerosis [Unknown]
  - Sensory loss [Unknown]
  - Drug intolerance [Unknown]
  - Urinary tract infection [Recovered/Resolved]
  - Muscular weakness [Unknown]
  - Saccadic eye movement disorder [Unknown]

NARRATIVE: CASE EVENT DATE: 20240801
